FAERS Safety Report 4340818-7 (Version None)
Quarter: 2004Q2

REPORT INFORMATION
  Report Type: 
  Country: None (occurrence: None)
  Receive Date: 20040419
  Receipt Date: 20030731
  Transmission Date: 20050107
  Serious: No
  Sender: FDA-Public Use
  Company Number: US-GLAXOSMITHKLINE-A0419718A

PATIENT
  Sex: Female

DRUGS (2)
  1. ESKALITH [Suspect]
     Dosage: 450MG PER DAY
     Route: 048
  2. XANAX [Concomitant]

REACTIONS (2)
  - MUSCLE CRAMP [None]
  - PREMENSTRUAL SYNDROME [None]
